FAERS Safety Report 8007882-5 (Version None)
Quarter: 2011Q4

REPORT INFORMATION
  Report Type: 
  Country: None (occurrence: None)
  Receive Date: 20111222
  Receipt Date: 20111222
  Transmission Date: 20120403
  Serious: Yes (Life-Threatening)
  Sender: FDA-Public Use
  Company Number: None

PATIENT
  Age: 65 Year
  Sex: Female
  Weight: 108 kg

DRUGS (1)
  1. ENALAPRILAT [Suspect]
     Indication: HYPERTENSIVE CRISIS
     Dosage: 1.25MG IV X 1
     Route: 042
     Dates: start: 20111205

REACTIONS (2)
  - ERYTHEMA [None]
  - SWOLLEN TONGUE [None]
